FAERS Safety Report 9321765 (Version 4)
Quarter: 2013Q3

REPORT INFORMATION
  Report Type: Report from Study
  Country: BR (occurrence: BR)
  Receive Date: 20130531
  Receipt Date: 20130718
  Transmission Date: 20140515
  Serious: Yes (Hospitalization)
  Sender: FDA-Public Use
  Company Number: BR-ABBOTT-13P-020-1090217-00

PATIENT
  Age: 27 Year
  Sex: Male
  Weight: 52 kg

DRUGS (4)
  1. HUMIRA [Suspect]
     Indication: CROHN^S DISEASE
     Route: 058
     Dates: start: 201303, end: 20130425
  2. HUMIRA [Suspect]
     Route: 058
  3. MESALAZINE [Concomitant]
     Indication: CROHN^S DISEASE
     Dosage: 3 TABLETS DAILY
     Route: 048
     Dates: start: 2011
  4. PREDNISONE [Concomitant]
     Indication: PRODUCT USED FOR UNKNOWN INDICATION
     Route: 048

REACTIONS (4)
  - Pneumonia [Recovered/Resolved]
  - Pyrexia [Recovered/Resolved]
  - Cough [Not Recovered/Not Resolved]
  - Decreased immune responsiveness [Unknown]
